FAERS Safety Report 15397347 (Version 4)
Quarter: 2021Q4

REPORT INFORMATION
  Report Type: Spontaneous
  Country: JP (occurrence: JP)
  Receive Date: 20180918
  Receipt Date: 20211013
  Transmission Date: 20220303
  Serious: Yes (Hospitalization, Other)
  Sender: FDA-Public Use
  Company Number: JP-BRISTOL-MYERS SQUIBB COMPANY-BMS-2017-092133

PATIENT
  Age: 66 Year
  Sex: Male

DRUGS (10)
  1. YERVOY [Suspect]
     Active Substance: IPILIMUMAB
     Indication: Malignant melanoma
     Dosage: 3 MILLIGRAM/KILOGRAM, QMO
     Route: 041
     Dates: start: 20170920, end: 20170920
  2. OPDIVO [Suspect]
     Active Substance: NIVOLUMAB
     Indication: Malignant melanoma
     Dosage: (2015/8, UNK X 15, 2017/8/14)
     Route: 041
     Dates: start: 201508, end: 20170814
  3. REBAMIPIDE [Suspect]
     Active Substance: REBAMIPIDE
     Indication: Pneumocystis jirovecii pneumonia
     Dosage: UNK
     Route: 065
     Dates: start: 20171120, end: 20171214
  4. SULFAMETHOXAZOLE AND TRIMETHOPRIM [Suspect]
     Active Substance: SULFAMETHOXAZOLE\TRIMETHOPRIM
     Indication: Pneumocystis jirovecii pneumonia
     Dosage: UNK
     Route: 065
     Dates: start: 20171120, end: 20171209
  5. PREDNISOLONE [Concomitant]
     Active Substance: PREDNISOLONE
     Indication: Product used for unknown indication
     Dosage: 60 MG, UNK
     Route: 065
     Dates: start: 20171007, end: 20171016
  6. PREDNISOLONE [Concomitant]
     Active Substance: PREDNISOLONE
     Dosage: 50 MG, UNK
     Route: 065
     Dates: start: 20171016, end: 20171031
  7. PREDNISOLONE [Concomitant]
     Active Substance: PREDNISOLONE
     Dosage: 30 MG, UNK
     Route: 065
     Dates: start: 20171031, end: 20171113
  8. PREDNISOLONE [Concomitant]
     Active Substance: PREDNISOLONE
     Dosage: 15 MG, UNK
     Route: 065
     Dates: start: 20171113, end: 20171214
  9. FAMOTIDINE [Concomitant]
     Active Substance: FAMOTIDINE
     Indication: Product used for unknown indication
     Dosage: UNK
     Route: 065
     Dates: start: 20171010, end: 20171210
  10. LOXOPROFEN [Concomitant]
     Active Substance: LOXOPROFEN
     Indication: Product used for unknown indication
     Dosage: UNK
     Route: 065
     Dates: start: 20171120

REACTIONS (11)
  - Metastases to eye [Not Recovered/Not Resolved]
  - Rash [Unknown]
  - Pyrexia [Unknown]
  - Abdominal pain [Unknown]
  - Vomiting [Unknown]
  - Uveitis [Not Recovered/Not Resolved]
  - Pneumocystis jirovecii pneumonia [Unknown]
  - Diarrhoea [Unknown]
  - Nausea [Unknown]
  - Off label use [Unknown]
  - Erythema multiforme [Unknown]

NARRATIVE: CASE EVENT DATE: 20170923
